APPROVED DRUG PRODUCT: METHOXSALEN
Active Ingredient: METHOXSALEN
Strength: 10MG
Dosage Form/Route: CAPSULE;ORAL
Application: A202687 | Product #001 | TE Code: AB
Applicant: ONESOURCE SPECIALTY PTE LTD
Approved: Jun 5, 2014 | RLD: No | RS: No | Type: RX